FAERS Safety Report 9675042 (Version 2)
Quarter: 2013Q4

REPORT INFORMATION
  Report Type: Spontaneous
  Country: GB (occurrence: GB)
  Receive Date: 20131107
  Receipt Date: 20131107
  Transmission Date: 20140711
  Serious: Yes (Death, Life-Threatening, Hospitalization, Other)
  Sender: FDA-Public Use
  Company Number: GB-DRREDDYS-GER/UKI/13/0034083

PATIENT
  Age: 83 Year
  Sex: Male
  Weight: 52.6 kg

DRUGS (6)
  1. DONEPEZIL [Suspect]
     Indication: DEMENTIA
     Route: 048
     Dates: start: 20120723, end: 20130723
  2. AMITRIPTYLINE [Concomitant]
     Indication: PRODUCT USED FOR UNKNOWN INDICATION
  3. CALCICHEW D3 [Concomitant]
     Indication: PRODUCT USED FOR UNKNOWN INDICATION
  4. GANFORT [Concomitant]
     Indication: PRODUCT USED FOR UNKNOWN INDICATION
  5. PROPRANOLOL [Concomitant]
     Indication: PRODUCT USED FOR UNKNOWN INDICATION
  6. TRAMADOL [Concomitant]
     Indication: PRODUCT USED FOR UNKNOWN INDICATION

REACTIONS (3)
  - Duodenal ulcer [Not Recovered/Not Resolved]
  - Duodenal ulcer haemorrhage [Not Recovered/Not Resolved]
  - Melaena [Fatal]
